FAERS Safety Report 12318878 (Version 2)
Quarter: 2016Q2

REPORT INFORMATION
  Report Type: Other
  Country: CA (occurrence: CA)
  Receive Date: 20160429
  Receipt Date: 20160624
  Transmission Date: 20160815
  Serious: Yes (Hospitalization, Other)
  Sender: FDA-Public Use
  Company Number: CA-APOPHARMA-2016AP008060

PATIENT
  Age: 33 Year
  Sex: Female

DRUGS (1)
  1. FERRIPROX [Suspect]
     Active Substance: DEFERIPRONE
     Indication: IRON OVERLOAD
     Dosage: 122.5 MG, QD
     Route: 048

REACTIONS (4)
  - Agranulocytosis [Unknown]
  - Febrile neutropenia [Unknown]
  - Oropharyngeal pain [Unknown]
  - Myalgia [Unknown]

NARRATIVE: CASE EVENT DATE: 20150821
